FAERS Safety Report 19837682 (Version 1)
Quarter: 2021Q3

REPORT INFORMATION
  Report Type: Spontaneous
  Country: US (occurrence: US)
  Receive Date: 20210914
  Receipt Date: 20210914
  Transmission Date: 20211014
  Serious: No
  Sender: FDA-Public Use
  Company Number: None

PATIENT
  Age: 57 Year
  Sex: Male
  Weight: 59.87 kg

DRUGS (1)
  1. AMLODIPINE (AMLODIPINE BESYLATE 5MG TAB) [Suspect]
     Active Substance: AMLODIPINE BESYLATE
     Indication: HYPERTENSION
     Route: 048
     Dates: start: 20210409, end: 20210708

REACTIONS (2)
  - Cellulitis [None]
  - Joint swelling [None]

NARRATIVE: CASE EVENT DATE: 20210607
